FAERS Safety Report 7874654-1 (Version None)
Quarter: 2011Q4

REPORT INFORMATION
  Report Type: 
  Country: None (occurrence: None)
  Receive Date: 20111031
  Receipt Date: 20111019
  Transmission Date: 20120403
  Serious: Yes (Other)
  Sender: FDA-Public Use
  Company Number: FR-US-EMD SERONO, INC.-7090214

PATIENT
  Sex: Female

DRUGS (1)
  1. REBIF [Suspect]
     Indication: MULTIPLE SCLEROSIS
     Route: 058
     Dates: start: 20100401, end: 20100901

REACTIONS (2)
  - HYPERTRICHOSIS [None]
  - INJECTION SITE NECROSIS [None]
